FAERS Safety Report 9262722 (Version 1)
Quarter: 2013Q2

REPORT INFORMATION
  Report Type: Spontaneous
  Country: US (occurrence: None)
  Receive Date: 20130426
  Receipt Date: 20130426
  Transmission Date: 20140414
  Serious: Yes (Hospitalization)
  Sender: FDA-Public Use
  Company Number: None

PATIENT
  Age: 64 Year
  Sex: Female
  Weight: 74.7 kg

DRUGS (7)
  1. IFOSFAMIDE [Suspect]
     Dates: end: 20121012
  2. K PHOSE [Concomitant]
  3. CALCIUM 1000MG +VITAMIN D [Concomitant]
  4. MULTI VITAMIN [Concomitant]
  5. POTASSIUM [Concomitant]
  6. SERTRALINE [Concomitant]
  7. TRAZODONE [Concomitant]

REACTIONS (11)
  - Renal failure acute [None]
  - Anaemia [None]
  - Pelvic fluid collection [None]
  - Glucose urine [None]
  - Urine ketone body [None]
  - Blood urine [None]
  - Protein urine [None]
  - Renal failure chronic [None]
  - Tubulointerstitial nephritis [None]
  - Pulmonary calcification [None]
  - Lower respiratory tract inflammation [None]
